FAERS Safety Report 6213010-9 (Version None)
Quarter: 2009Q2

REPORT INFORMATION
  Report Type: 
  Country: None (occurrence: None)
  Receive Date: 20090601
  Receipt Date: 20090520
  Transmission Date: 20091009
  Serious: Yes (Death, Hospitalization)
  Sender: FDA-Public Use
  Company Number: 2009AL003413

PATIENT
  Age: 3 Year
  Sex: Female

DRUGS (3)
  1. PHENYTOIN [Suspect]
     Indication: CONVULSION
     Dosage: 9.6 MG/KG; QD
  2. VALPROIC ACID SYRUP [Concomitant]
  3. LAMOTRIGINE [Concomitant]

REACTIONS (18)
  - ALANINE AMINOTRANSFERASE INCREASED [None]
  - AMMONIA INCREASED [None]
  - ANISOCYTOSIS [None]
  - ASPARTATE AMINOTRANSFERASE INCREASED [None]
  - BLOOD ALKALINE PHOSPHATASE INCREASED [None]
  - HYPOTONIA [None]
  - IRRITABILITY [None]
  - LIVER INJURY [None]
  - PARAINFLUENZAE VIRUS INFECTION [None]
  - PETECHIAE [None]
  - PLATELET COUNT DECREASED [None]
  - PNEUMONIA [None]
  - PROTHROMBIN TIME PROLONGED [None]
  - RASH [None]
  - RETICULOCYTE COUNT DECREASED [None]
  - RETICULOCYTE PERCENTAGE DECREASED [None]
  - STATUS EPILEPTICUS [None]
  - VIRUS CULTURE POSITIVE [None]
